FAERS Safety Report 7700636-6 (Version None)
Quarter: 2011Q3

REPORT INFORMATION
  Report Type: 
  Country: None (occurrence: None)
  Receive Date: 20110822
  Receipt Date: 20110822
  Transmission Date: 20111222
  Serious: No
  Sender: FDA-Public Use
  Company Number: None

PATIENT
  Sex: Female

DRUGS (1)
  1. AMPYRA [Suspect]
     Indication: MULTIPLE SCLEROSIS
     Dosage: 1 TABLET
     Route: 048
     Dates: start: 20110814, end: 20110814

REACTIONS (2)
  - DIZZINESS [None]
  - CONFUSIONAL STATE [None]
